FAERS Safety Report 5762079-4 (Version None)
Quarter: 2008Q2

REPORT INFORMATION
  Report Type: 
  Country: None (occurrence: None)
  Receive Date: 20080604
  Receipt Date: 20080526
  Transmission Date: 20081010
  Serious: Yes (Other)
  Sender: FDA-Public Use
  Company Number: 2008AP000285

PATIENT
  Age: 29 Year
  Sex: Female

DRUGS (16)
  1. PAROXETINE HCL [Suspect]
     Dosage: 20 MG; PO QD; 40 MG; PO; AM; 60 MG; 30 MG; PO; QD; 20 MG; TAB; PO; 20 MG; TAB; PO; QOD; 6 ML; 5 ML;
     Route: 048
     Dates: start: 20000101
  2. PAROXETINE HCL [Suspect]
     Dosage: 20 MG; PO QD; 40 MG; PO; AM; 60 MG; 30 MG; PO; QD; 20 MG; TAB; PO; 20 MG; TAB; PO; QOD; 6 ML; 5 ML;
     Route: 048
     Dates: start: 20001031
  3. PAROXETINE HCL [Suspect]
     Dosage: 20 MG; PO QD; 40 MG; PO; AM; 60 MG; 30 MG; PO; QD; 20 MG; TAB; PO; 20 MG; TAB; PO; QOD; 6 ML; 5 ML;
     Route: 048
     Dates: start: 20020605
  4. PAROXETINE HCL [Suspect]
     Dosage: 20 MG; PO QD; 40 MG; PO; AM; 60 MG; 30 MG; PO; QD; 20 MG; TAB; PO; 20 MG; TAB; PO; QOD; 6 ML; 5 ML;
     Route: 048
     Dates: start: 20030301
  5. PAROXETINE HCL [Suspect]
     Dosage: 20 MG; PO QD; 40 MG; PO; AM; 60 MG; 30 MG; PO; QD; 20 MG; TAB; PO; 20 MG; TAB; PO; QOD; 6 ML; 5 ML;
     Route: 048
     Dates: start: 20030601
  6. PAROXETINE HCL [Suspect]
     Dosage: 20 MG; PO QD; 40 MG; PO; AM; 60 MG; 30 MG; PO; QD; 20 MG; TAB; PO; 20 MG; TAB; PO; QOD; 6 ML; 5 ML;
     Route: 048
     Dates: start: 20040601
  7. PAROXETINE HCL [Suspect]
     Dosage: 20 MG; PO QD; 40 MG; PO; AM; 60 MG; 30 MG; PO; QD; 20 MG; TAB; PO; 20 MG; TAB; PO; QOD; 6 ML; 5 ML;
     Route: 048
     Dates: start: 20040601
  8. PAROXETINE HCL [Suspect]
     Dosage: 20 MG; PO QD; 40 MG; PO; AM; 60 MG; 30 MG; PO; QD; 20 MG; TAB; PO; 20 MG; TAB; PO; QOD; 6 ML; 5 ML;
     Route: 048
     Dates: start: 20050501
  9. PAROXETINE HCL [Suspect]
     Dosage: 20 MG; PO QD; 40 MG; PO; AM; 60 MG; 30 MG; PO; QD; 20 MG; TAB; PO; 20 MG; TAB; PO; QOD; 6 ML; 5 ML;
     Route: 048
     Dates: start: 20050513
  10. PAROXETINE HCL [Suspect]
     Dosage: 20 MG; PO QD; 40 MG; PO; AM; 60 MG; 30 MG; PO; QD; 20 MG; TAB; PO; 20 MG; TAB; PO; QOD; 6 ML; 5 ML;
     Route: 048
     Dates: start: 20051001
  11. PAROXETINE HCL [Suspect]
     Dosage: 20 MG; PO QD; 40 MG; PO; AM; 60 MG; 30 MG; PO; QD; 20 MG; TAB; PO; 20 MG; TAB; PO; QOD; 6 ML; 5 ML;
     Route: 048
     Dates: start: 20060401
  12. PAROXETINE HCL [Suspect]
     Dosage: 20 MG; PO QD; 40 MG; PO; AM; 60 MG; 30 MG; PO; QD; 20 MG; TAB; PO; 20 MG; TAB; PO; QOD; 6 ML; 5 ML;
     Route: 048
     Dates: start: 20061201
  13. AMPHETAMINE SULFATE [Concomitant]
  14. MEDROXYPROGESTERONE ACETATE [Concomitant]
  15. DIAZEPAM [Concomitant]
  16. THIORIDAZINE HCL [Concomitant]

REACTIONS (41)
  - ABNORMAL DREAMS [None]
  - AGGRESSION [None]
  - AGITATION [None]
  - ALCOHOL ABUSE [None]
  - ANXIETY [None]
  - APATHY [None]
  - ASTHENIA [None]
  - COGNITIVE DISORDER [None]
  - CONFUSIONAL STATE [None]
  - DEPRESSION [None]
  - DEREALISATION [None]
  - DIZZINESS [None]
  - DRUG WITHDRAWAL SYNDROME [None]
  - FATIGUE [None]
  - FEELING ABNORMAL [None]
  - FEELING COLD [None]
  - FEELING HOT [None]
  - FLATULENCE [None]
  - GASTROENTERITIS VIRAL [None]
  - HALLUCINATION [None]
  - HEADACHE [None]
  - HIRSUTISM [None]
  - HYPERHIDROSIS [None]
  - ILL-DEFINED DISORDER [None]
  - INFLUENZA LIKE ILLNESS [None]
  - INSOMNIA [None]
  - IRRITABILITY [None]
  - KLEPTOMANIA [None]
  - LEGAL PROBLEM [None]
  - MOOD SWINGS [None]
  - MUSCLE SPASMS [None]
  - MUSCLE STRAIN [None]
  - NAUSEA [None]
  - OVERDOSE [None]
  - PANIC ATTACK [None]
  - PARAESTHESIA [None]
  - SELF-MEDICATION [None]
  - SOMNOLENCE [None]
  - SUICIDAL BEHAVIOUR [None]
  - TREMOR [None]
  - VIRAL INFECTION [None]
